FAERS Safety Report 5366746-6 (Version None)
Quarter: 2007Q2

REPORT INFORMATION
  Report Type: 
  Country: None (occurrence: None)
  Receive Date: 20070622
  Receipt Date: 20060908
  Transmission Date: 20071010
  Serious: No
  Sender: FDA-Public Use
  Company Number: A0619562A

PATIENT
  Age: 57 Year
  Sex: Female

DRUGS (2)
  1. THORAZINE [Suspect]
     Indication: SCHIZOPHRENIA
     Route: 048
  2. KLONOPIN [Concomitant]

REACTIONS (1)
  - SKIN DISCOLOURATION [None]
